FAERS Safety Report 24106760 (Version 1)
Quarter: 2024Q3

REPORT INFORMATION
  Report Type: Other
  Country: FR (occurrence: FR)
  Receive Date: 20240717
  Receipt Date: 20240717
  Transmission Date: 20241016
  Serious: Yes (Other)
  Sender: INCYTE
  Company Number: None

PATIENT

DRUGS (2)
  1. RUXOLITINIB [Suspect]
     Active Substance: RUXOLITINIB
     Indication: VEXAS syndrome
     Dosage: 20 MG, QD, 10 MG/ 2 FOIS PAR JOUR
     Route: 048
     Dates: start: 20240331, end: 20240601
  2. PREDNISONE [Suspect]
     Active Substance: PREDNISONE
     Indication: VEXAS syndrome
     Dosage: 10 MG/ 2 FOIS PAR JOUR
     Route: 048

REACTIONS (2)
  - Salmonella bacteraemia [Recovered/Resolved]
  - Oesophageal candidiasis [Recovered/Resolved]

NARRATIVE: CASE EVENT DATE: 20240413
